FAERS Safety Report 23098971 (Version 1)
Quarter: 2023Q4

REPORT INFORMATION
  Report Type: Report from Study
  Country: MX (occurrence: MX)
  Receive Date: 20231024
  Receipt Date: 20231024
  Transmission Date: 20240110
  Serious: Yes (Hospitalization)
  Sender: FDA-Public Use
  Company Number: MX-OCTA-GENA01623

PATIENT
  Sex: Male
  Weight: 12.1 kg

DRUGS (1)
  1. NUWIQ [Suspect]
     Active Substance: ANTIHEMOPHILIC FACTOR, HUMAN RECOMBINANT
     Indication: Immune tolerance induction
     Route: 042
     Dates: start: 20230710, end: 20230925

REACTIONS (3)
  - Factor VIII inhibition [Recovering/Resolving]
  - Haematoma [Recovered/Resolved]
  - Drug ineffective for unapproved indication [Unknown]

NARRATIVE: CASE EVENT DATE: 20230926
